FAERS Safety Report 8192295-6 (Version None)
Quarter: 2012Q1

REPORT INFORMATION
  Report Type: 
  Country: None (occurrence: None)
  Receive Date: 20120307
  Receipt Date: 20120301
  Transmission Date: 20120608
  Serious: Yes (Other)
  Sender: FDA-Public Use
  Company Number: US-VERTEX PHARMACEUTICALS INC.-AE-2011-005393

PATIENT
  Sex: Female
  Weight: 61.23 kg

DRUGS (19)
  1. RIBAVIRIN [Concomitant]
     Indication: HEPATITIS C
     Route: 048
     Dates: start: 20110913
  2. OXYCODONE HCL [Concomitant]
  3. TRIAMCINOLONE ACETONIDE [Concomitant]
  4. VALIUM [Concomitant]
  5. PROMETHAZINE HCL [Concomitant]
  6. CHLORHEXIDINE GLUCONATE [Concomitant]
  7. NEUPOGEN [Concomitant]
  8. IBUPROFEN [Concomitant]
  9. OXYCONTIN [Concomitant]
  10. PEGASYS [Concomitant]
     Indication: HEPATITIS C
     Route: 058
     Dates: start: 20110913
  11. LAXATIVE [Concomitant]
  12. STOOL SOFTENER [Concomitant]
  13. LEVOXYL [Concomitant]
  14. PROBIOTIC [Concomitant]
  15. INCIVEK [Suspect]
     Indication: HEPATITIS C
     Route: 048
     Dates: start: 20110913
  16. CALCIUM [Concomitant]
  17. SOMA [Concomitant]
  18. ZOVIRAX [Concomitant]
  19. NASONEX [Concomitant]

REACTIONS (1)
  - NEUTROPENIA [None]
